FAERS Safety Report 8816727 (Version 1)
Quarter: 2012Q4

REPORT INFORMATION
  Report Type: Spontaneous
  Country: US (occurrence: None)
  Receive Date: 20121001
  Receipt Date: 20121001
  Transmission Date: 20130627
  Serious: Yes (Hospitalization)
  Sender: FDA-Public Use
  Company Number: 2012-00156

PATIENT
  Age: 93 Year
  Sex: Female
  Weight: 52.16 kg

DRUGS (1)
  1. ZICAM [Suspect]
     Indication: COLD
     Dosage: Sprayed into mouth twice daily
     Dates: start: 20120921

REACTIONS (1)
  - Disorientation [None]
